FAERS Safety Report 7298822-5 (Version None)
Quarter: 2011Q1

REPORT INFORMATION
  Report Type: 
  Country: None (occurrence: None)
  Receive Date: 20110217
  Receipt Date: 20110214
  Transmission Date: 20110831
  Serious: Yes (Hospitalization, Other)
  Sender: FDA-Public Use
  Company Number: US-JNJFOC-20101101260

PATIENT
  Sex: Female

DRUGS (3)
  1. ALTACE [Concomitant]
     Indication: HYPERTENSION
     Route: 065
  2. LIPITOR [Concomitant]
     Indication: BLOOD CHOLESTEROL INCREASED
     Route: 065
  3. LEVAQUIN [Suspect]
     Indication: OROPHARYNGEAL PAIN
     Route: 048

REACTIONS (4)
  - TENDON RUPTURE [None]
  - ANXIETY [None]
  - ROTATOR CUFF SYNDROME [None]
  - FOOT DEFORMITY [None]
